FAERS Safety Report 5762584-0 (Version None)
Quarter: 2008Q2

REPORT INFORMATION
  Report Type: 
  Country: None (occurrence: None)
  Receive Date: 20080609
  Receipt Date: 20080528
  Transmission Date: 20081010
  Serious: Yes (Hospitalization, Other)
  Sender: FDA-Public Use
  Company Number: SE-JNJFOC-20070704415

PATIENT
  Age: 33 Year
  Sex: Male

DRUGS (5)
  1. REMICADE [Suspect]
     Indication: CROHN'S DISEASE
     Route: 042
  2. METHOTREXATE [Suspect]
     Indication: CROHN'S DISEASE
  3. PENTASA [Concomitant]
  4. ENTOCORT EC [Concomitant]
  5. FOLACIN [Concomitant]

REACTIONS (1)
  - RECTAL CANCER [None]
